FAERS Safety Report 9883345 (Version 1)
Quarter: 2014Q1

REPORT INFORMATION
  Report Type: Report from Study
  Country: AU (occurrence: AU)
  Receive Date: 20140210
  Receipt Date: 20140210
  Transmission Date: 20141002
  Serious: Yes (Other)
  Sender: FDA-Public Use
  Company Number: AU-ROCHE-1339962

PATIENT
  Sex: Female

DRUGS (2)
  1. NAPROXEN [Suspect]
     Indication: ANALGESIC THERAPY
     Route: 065
  2. KETOROLAC [Suspect]
     Indication: ANALGESIC THERAPY
     Route: 065

REACTIONS (8)
  - Wound infection [Unknown]
  - Cardiac disorder [Unknown]
  - Lung disorder [Unknown]
  - Gastrointestinal disorder [Unknown]
  - Blood disorder [Unknown]
  - Ill-defined disorder [Unknown]
  - Arrhythmia [Unknown]
  - Metabolic disorder [Unknown]
